FAERS Safety Report 4765560-X (Version None)
Quarter: 2005Q3

REPORT INFORMATION
  Report Type: 
  Country: None (occurrence: None)
  Receive Date: 20050906
  Receipt Date: 20050819
  Transmission Date: 20060218
  Serious: Yes (Other)
  Sender: FDA-Public Use
  Company Number: 8010789

PATIENT
  Age: 49 Year
  Sex: Male
  Weight: 78 kg

DRUGS (5)
  1. KEPPRA [Suspect]
     Indication: EPILEPSY
     Dosage: 1000 MG /D PO
     Route: 048
     Dates: start: 20040326, end: 20040426
  2. KEPPRA [Suspect]
     Indication: EPILEPSY
     Dosage: 3000 MG /D PO
     Route: 048
     Dates: start: 20040427, end: 20040808
  3. KEPPRA [Suspect]
     Indication: EPILEPSY
     Dosage: 4000 MG /D PO
     Route: 048
     Dates: start: 20040809, end: 20041117
  4. KEPPRA [Suspect]
     Indication: EPILEPSY
     Dosage: 6000 MG /D PO
     Route: 048
     Dates: start: 20041118
  5. OXCARBAZEPINE [Concomitant]

REACTIONS (2)
  - DRUG EFFECT DECREASED [None]
  - GRAND MAL CONVULSION [None]
